FAERS Safety Report 6473900-9 (Version None)
Quarter: 2009Q4

REPORT INFORMATION
  Report Type: 
  Country: None (occurrence: None)
  Receive Date: 20091204
  Receipt Date: 20091123
  Transmission Date: 20100525
  Serious: Yes (Hospitalization)
  Sender: FDA-Public Use
  Company Number: DE-NAPPMUNDI-DEU-2009-0005718

PATIENT
  Age: 70 Year
  Sex: Male

DRUGS (16)
  1. MST [Suspect]
     Indication: PAIN
     Dosage: 30 MG, DAILY
     Route: 048
     Dates: start: 20090601
  2. SEVREDOL 10 MG [Interacting]
     Indication: PAIN
     Dosage: 10 MG, PRN
     Dates: start: 20090601, end: 20090830
  3. ACETYLSALICYLIC ACID [Concomitant]
  4. AMLODIPINE [Concomitant]
  5. BISOPROLOL [Concomitant]
  6. CIPROFLOXACIN [Concomitant]
  7. CLEXANE [Concomitant]
  8. CLINDAMYCIN [Concomitant]
  9. DIGITOXIN INJ [Concomitant]
  10. LAXOBERAL [Concomitant]
  11. PANTOZOL                           /01263202/ [Concomitant]
  12. PENTAERYTHRITOL TETRANITRATE [Concomitant]
  13. SPIRIVA [Concomitant]
  14. SYMBICORT [Concomitant]
  15. TORASEMIDE [Concomitant]
  16. XIPAMIDE [Concomitant]

REACTIONS (1)
  - ENCEPHALOPATHY [None]
